FAERS Safety Report 4808477-4 (Version None)
Quarter: 2005Q4

REPORT INFORMATION
  Report Type: 
  Country: None (occurrence: None)
  Receive Date: 20051025
  Receipt Date: 20051012
  Transmission Date: 20060501
  Serious: Yes (Other)
  Sender: FDA-Public Use
  Company Number: AU-NOVOPROD-247717

PATIENT
  Age: 35 Year
  Sex: Female

DRUGS (2)
  1. PROTAPHANE PENFILL [Suspect]
     Indication: DIABETES MELLITUS INSULIN-DEPENDENT
  2. NOVORAPID PENFILL [Suspect]
     Indication: DIABETES MELLITUS INSULIN-DEPENDENT

REACTIONS (7)
  - CHEST PAIN [None]
  - DYSGEUSIA [None]
  - DYSPNOEA [None]
  - HYPOAESTHESIA [None]
  - HYPOGLYCAEMIA [None]
  - PHARYNGOLARYNGEAL PAIN [None]
  - SWOLLEN TONGUE [None]
